FAERS Safety Report 6567511-4 (Version None)
Quarter: 2010Q1

REPORT INFORMATION
  Report Type: 
  Country: None (occurrence: None)
  Receive Date: 20100202
  Receipt Date: 20100121
  Transmission Date: 20100710
  Serious: Yes (Other)
  Sender: FDA-Public Use
  Company Number: US-JNJFOC-20100200194

PATIENT
  Age: 76 Year
  Sex: Female
  Weight: 84.37 kg

DRUGS (7)
  1. EXTRA STRENGTH TYLENOL [Suspect]
     Route: 048
  2. EXTRA STRENGTH TYLENOL [Suspect]
     Indication: DRUG USE FOR UNKNOWN INDICATION
     Dosage: TAKING PRODUCT FOR YEARS
     Route: 048
  3. METOPROLOL SUCCINATE [Concomitant]
     Indication: CARDIAC DISORDER
  4. SIMVASTATIN [Concomitant]
     Indication: BLOOD CHOLESTEROL
  5. LANSOPRAZOLE [Concomitant]
     Indication: PROPHYLAXIS
  6. HYDROCHLOROTHIAZIDE [Concomitant]
     Indication: DIURETIC THERAPY
  7. ASPIRIN [Concomitant]
     Indication: CARDIAC DISORDER

REACTIONS (5)
  - ABDOMINAL PAIN UPPER [None]
  - HAEMATOCHEZIA [None]
  - PRODUCT QUALITY ISSUE [None]
  - VOMITING [None]
  - WEIGHT DECREASED [None]
